FAERS Safety Report 5750440-3 (Version None)
Quarter: 2008Q2

REPORT INFORMATION
  Report Type: 
  Country: None (occurrence: None)
  Receive Date: 20080528
  Receipt Date: 20070529
  Transmission Date: 20081010
  Serious: No
  Sender: FDA-Public Use
  Company Number: US-KINGPHARMUSA00001-K200700655

PATIENT

DRUGS (2)
  1. AVINZA [Suspect]
     Indication: BACK PAIN
     Route: 042
     Dates: start: 20070501, end: 20070523
  2. ANESTHETICS NOS [Suspect]
     Indication: SURGERY
     Dates: start: 20070501

REACTIONS (6)
  - DRUG LEVEL INCREASED [None]
  - DRUG SCREEN POSITIVE [None]
  - EUPHORIC MOOD [None]
  - FEELING ABNORMAL [None]
  - INCORRECT ROUTE OF DRUG ADMINISTRATION [None]
  - INTENTIONAL DRUG MISUSE [None]
